FAERS Safety Report 8166713 (Version 2)
Quarter: 2012Q4

REPORT INFORMATION
  Report Type: 
  Country: US (occurrence: US)
  Receive Date: 20111003
  Receipt Date: 20120925
  Transmission Date: 20130627
  Serious: Yes (Hospitalization)
  Sender: FDA-Public Use
  Company Number: US-US-EMD SERONO, INC.-7051533

PATIENT
  Age: 57 None
  Sex: Male
  Weight: 121 kg

DRUGS (6)
  1. REBIF [Suspect]
     Indication: MULTIPLE SCLEROSIS
     Route: 058
     Dates: start: 2005, end: 2008
  2. REBIF [Suspect]
     Route: 058
     Dates: start: 2009
  3. PREVACID [Concomitant]
     Indication: GASTROOESOPHAGEAL REFLUX DISEASE
  4. MAXIDE [Concomitant]
     Indication: HYPERTENSION
  5. VASOTEC [Concomitant]
     Indication: HYPERTENSION
  6. IMMUNE GLOBULIN INFUSION [Concomitant]
     Indication: MULTIPLE SCLEROSIS
     Route: 042

REACTIONS (3)
  - Colon cancer stage II [Recovered/Resolved with Sequelae]
  - Multiple sclerosis relapse [Recovered/Resolved]
  - Anaemia [Unknown]
